FAERS Safety Report 4948973-2 (Version None)
Quarter: 2006Q1

REPORT INFORMATION
  Report Type: 
  Country: None (occurrence: None)
  Receive Date: 20060321
  Receipt Date: 20060309
  Transmission Date: 20060701
  Serious: Yes (Hospitalization)
  Sender: FDA-Public Use
  Company Number: BR-BRISTOL-MYERS SQUIBB COMPANY-13310974

PATIENT
  Age: 62 Year
  Sex: Female

DRUGS (5)
  1. ABATACEPT [Suspect]
     Indication: RHEUMATOID ARTHRITIS
     Route: 042
     Dates: start: 20040602
  2. LEFLUNOMIDE [Concomitant]
     Route: 048
     Dates: start: 20040721
  3. PREDNISONE TAB [Concomitant]
     Dates: start: 20030201
  4. LOXOPROFEN [Concomitant]
     Dates: start: 20030201
  5. AMIODARONE HCL [Concomitant]
     Dates: start: 19970101

REACTIONS (3)
  - ABDOMINAL PAIN UPPER [None]
  - ASTHENIA [None]
  - GASTROENTERITIS [None]
